FAERS Safety Report 18174637 (Version 3)
Quarter: 2020Q3

REPORT INFORMATION
  Report Type: Spontaneous
  Country: US (occurrence: US)
  Receive Date: 20200820
  Receipt Date: 20200923
  Transmission Date: 20201103
  Serious: No
  Sender: FDA-Public Use
  Company Number: US-PFIZER INC-2020315850

PATIENT
  Age: 83 Year
  Sex: Female

DRUGS (1)
  1. DILANTIN [Suspect]
     Active Substance: PHENYTOIN
     Dosage: 300 MG, 1X/DAY (300 MG AT NIGHT, 3 PILLS/THREE 100 MG A DAY AT NIGHT)

REACTIONS (1)
  - Visual impairment [Unknown]
